FAERS Safety Report 16112554 (Version 6)
Quarter: 2022Q3

REPORT INFORMATION
  Report Type: Spontaneous
  Country: US (occurrence: US)
  Receive Date: 20190325
  Receipt Date: 20220915
  Transmission Date: 20221027
  Serious: No
  Sender: FDA-Public Use
  Company Number: US-PFIZER INC-2018391767

PATIENT
  Age: 66 Year
  Sex: Female
  Weight: 65.76 kg

DRUGS (7)
  1. RAPAMUNE [Suspect]
     Active Substance: SIROLIMUS
     Indication: Renal disorder
     Dosage: 1 MG, CYCLIC EVERY THIRD DAY (ONE DAY ON AND TWO DAYS OFF)
     Route: 048
     Dates: start: 2009
  2. RAPAMUNE [Suspect]
     Active Substance: SIROLIMUS
     Dosage: 1 MG, ALTERNATE DAY (1MG ANY OTHER DAY)
  3. RAPAMUNE [Suspect]
     Active Substance: SIROLIMUS
     Dosage: 1 MG, CYCLIC (EVERY THIRD DAY)
     Route: 048
  4. RAPAMUNE [Suspect]
     Active Substance: SIROLIMUS
     Dosage: 0.5MG - TAKE 2 TABLETS BY MOUTH EVERY THIRD DAY
     Route: 048
  5. CELLCEPT [Concomitant]
     Active Substance: MYCOPHENOLATE MOFETIL
     Indication: Renal transplant
     Dosage: 500 MG, 2X/DAY
     Route: 048
     Dates: start: 2008
  6. LOSARTAN [Concomitant]
     Active Substance: LOSARTAN
     Indication: Hypertension
     Dosage: 50 MG, 2X/DAY [IN MORNING AND ONE IN EVENING ]
     Route: 048
  7. LANTUS [Concomitant]
     Active Substance: INSULIN GLARGINE
     Indication: Diabetes mellitus
     Dosage: 29 IU, 1X/DAY[29 UNITS. ONCE A DAY]
     Dates: start: 2008

REACTIONS (3)
  - Off label use [Unknown]
  - Product use issue [Unknown]
  - Insomnia [Unknown]
